FAERS Safety Report 5553073-7 (Version None)
Quarter: 2007Q4

REPORT INFORMATION
  Report Type: 
  Country: None (occurrence: None)
  Receive Date: 20071212
  Receipt Date: 20070706
  Transmission Date: 20080405
  Serious: No
  Sender: FDA-Public Use
  Company Number: US-AMGEN-KDL227040

PATIENT
  Sex: Female

DRUGS (4)
  1. ENBREL [Suspect]
     Indication: RHEUMATOID ARTHRITIS
     Route: 058
     Dates: start: 20070401
  2. METHOTREXATE [Suspect]
     Route: 058
     Dates: start: 20060501
  3. FOLIC ACID [Concomitant]
     Dates: start: 20060501
  4. PREMARIN [Concomitant]

REACTIONS (1)
  - PHARYNGITIS STREPTOCOCCAL [None]
